FAERS Safety Report 19997229 (Version 1)
Quarter: 2021Q4

REPORT INFORMATION
  Report Type: Spontaneous
  Country: GB (occurrence: GB)
  Receive Date: 20211025
  Receipt Date: 20211025
  Transmission Date: 20220303
  Serious: Yes (Hospitalization)
  Sender: FDA-Public Use
  Company Number: GB-BAXTER-2021BAX033280

PATIENT
  Age: 54 Year
  Weight: 100.3 kg

DRUGS (3)
  1. DOXORUBICIN HYDROCHLORIDE [Suspect]
     Active Substance: DOXORUBICIN HYDROCHLORIDE
     Indication: Ill-defined disorder
     Route: 051
     Dates: start: 20210630, end: 20210922
  2. VINCRISTINE SULFATE [Suspect]
     Active Substance: VINCRISTINE SULFATE
     Indication: Ill-defined disorder
     Route: 051
     Dates: start: 20210630, end: 20210922
  3. PREDNISOLONE [Suspect]
     Active Substance: PREDNISOLONE
     Indication: Ill-defined disorder
     Route: 048
     Dates: start: 20210630, end: 20210922

REACTIONS (1)
  - Herpes zoster [Not Recovered/Not Resolved]
